FAERS Safety Report 10097131 (Version 1)
Quarter: 2014Q2

REPORT INFORMATION
  Report Type: Spontaneous
  Country: DK (occurrence: CA)
  Receive Date: 20140422
  Receipt Date: 20140422
  Transmission Date: 20141212
  Serious: Yes (Other)
  Sender: FDA-Public Use
  Company Number: CA-FRI-1000066734

PATIENT
  Age: 38 Year
  Sex: Male

DRUGS (2)
  1. ESCITALOPRAM [Suspect]
  2. ESCITALOPRAM [Suspect]

REACTIONS (2)
  - Impulsive behaviour [Recovered/Resolved]
  - Aggression [Recovered/Resolved]
